FAERS Safety Report 8109731-3 (Version None)
Quarter: 2012Q1

REPORT INFORMATION
  Report Type: 
  Country: None (occurrence: None)
  Receive Date: 20120202
  Receipt Date: 20120118
  Transmission Date: 20120608
  Serious: No
  Sender: FDA-Public Use
  Company Number: US-AMGEN-USASP2012003789

PATIENT
  Sex: Male
  Weight: 95.238 kg

DRUGS (4)
  1. MULTIVITAMIN                       /00097801/ [Concomitant]
     Dosage: UNK
     Route: 048
  2. TRAMADOL HCL [Concomitant]
     Dosage: 50 MG, UNK
     Route: 048
  3. ENBREL [Suspect]
     Indication: PRODUCT USED FOR UNKNOWN INDICATION
     Dosage: 50 MG, QWK
     Route: 058
  4. METHOTREXATE [Concomitant]
     Dosage: 1 MG, UNK

REACTIONS (1)
  - INJECTION SITE PAIN [None]
